FAERS Safety Report 8370836-3 (Version None)
Quarter: 2012Q2

REPORT INFORMATION
  Report Type: 
  Country: None (occurrence: None)
  Receive Date: 20120518
  Receipt Date: 20110414
  Transmission Date: 20120825
  Serious: No
  Sender: FDA-Public Use
  Company Number: US-ASTRAZENECA-2011SE21759

PATIENT
  Sex: Female

DRUGS (1)
  1. PRILOSEC OTC [Suspect]
     Route: 048
     Dates: end: 20110412

REACTIONS (3)
  - THROAT TIGHTNESS [None]
  - THROAT IRRITATION [None]
  - DYSPHAGIA [None]
